FAERS Safety Report 4485772-2 (Version None)
Quarter: 2004Q4

REPORT INFORMATION
  Report Type: 
  Country: None (occurrence: None)
  Receive Date: 20041021
  Receipt Date: 20041011
  Transmission Date: 20050328
  Serious: Yes (Life-Threatening, Hospitalization, Disabling, Other)
  Sender: FDA-Public Use
  Company Number: HQWYE471919JAN04

PATIENT
  Age: 5 Year
  Sex: Male

DRUGS (5)
  1. MYLOTRAG (GEMTUZUMAB OZOGAMICIN, INJECTION) [Suspect]
     Dosage: SEE IMAGE
     Route: 042
     Dates: start: 20030618, end: 20030618
  2. MYLOTRAG (GEMTUZUMAB OZOGAMICIN, INJECTION) [Suspect]
     Dosage: SEE IMAGE
     Route: 042
     Dates: start: 20030709, end: 20030709
  3. MYLOTRAG (GEMTUZUMAB OZOGAMICIN, INJECTION) [Suspect]
     Dosage: SEE IMAGE
     Route: 042
     Dates: start: 20030730, end: 20030730
  4. MYLOTRAG (GEMTUZUMAB OZOGAMICIN, INJECTION) [Suspect]
     Dosage: SEE IMAGE
     Route: 042
     Dates: start: 20030820, end: 20030820
  5. CYTORAN (CYCLOPHOSPHAMIDE) [Concomitant]

REACTIONS (15)
  - ABDOMINAL DISTENSION [None]
  - ALANINE AMINOTRANSFERASE INCREASED [None]
  - ASCITES [None]
  - ASPARTATE AMINOTRANSFERASE INCREASED [None]
  - BLOOD ALBUMIN INCREASED [None]
  - BLOOD ALKALINE PHOSPHATASE INCREASED [None]
  - GRAFT VERSUS HOST DISEASE [None]
  - HAEMATEMESIS [None]
  - HEPATIC FIBROSIS [None]
  - PORTAL HYPERTENSION [None]
  - PROTHROMBIN TIME PROLONGED [None]
  - RASH [None]
  - REFRACTORINESS TO PLATELET TRANSFUSION [None]
  - VARICES OESOPHAGEAL [None]
  - WEIGHT INCREASED [None]
